FAERS Safety Report 9543960 (Version 1)
Quarter: 2013Q2

REPORT INFORMATION
  Report Type: Spontaneous
  Country: US (occurrence: None)
  Receive Date: 20130524
  Receipt Date: 20130524
  Transmission Date: 20140414
  Serious: Yes (Other)
  Sender: FDA-Public Use
  Company Number: PHEH2012US024811

PATIENT
  Age: 51 Year
  Sex: Male
  Weight: 72.6 kg

DRUGS (1)
  1. GILENYA (FINGOLIMOD) CAPSULE, 0.5MG [Suspect]
     Route: 048
     Dates: start: 20120612

REACTIONS (4)
  - Depression [None]
  - Fatigue [None]
  - Pain in extremity [None]
  - Back pain [None]
